FAERS Safety Report 4314225-7 (Version None)
Quarter: 2004Q1

REPORT INFORMATION
  Report Type: 
  Country: None (occurrence: None)
  Receive Date: 20040309
  Receipt Date: 20040309
  Transmission Date: 20041129
  Serious: Yes (Hospitalization)
  Sender: FDA-Public Use
  Company Number: None

PATIENT
  Sex: Male
  Weight: 90 kg

DRUGS (1)
  1. ARIPIPRAZOLE 15 MG BRISTOL-MYERS SQUIBB [Suspect]
     Indication: ABNORMAL BEHAVIOUR
     Dosage: 15 MG DAILY ORAL
     Route: 048
     Dates: start: 20040101, end: 20040122

REACTIONS (1)
  - HYPERTENSION [None]
